FAERS Safety Report 14307074 (Version 2)
Quarter: 2018Q2

REPORT INFORMATION
  Report Type: Report from Study
  Country: None (occurrence: US)
  Receive Date: 20171220
  Receipt Date: 20180404
  Transmission Date: 20180711
  Serious: Yes (Hospitalization, Other)
  Sender: FDA-Public Use
  Company Number: US-ABBVIE-17K-163-2184849-00

PATIENT
  Age: 54 Year
  Sex: Male
  Weight: 77.18 kg

DRUGS (2)
  1. HUMIRA [Suspect]
     Active Substance: ADALIMUMAB
     Indication: PSORIASIS
     Route: 058
     Dates: start: 201709
  2. HUMIRA [Suspect]
     Active Substance: ADALIMUMAB
     Indication: CROHN^S DISEASE
     Route: 058
     Dates: end: 201707

REACTIONS (10)
  - Dry skin [Not Recovered/Not Resolved]
  - Vitamin D deficiency [Recovering/Resolving]
  - Vitamin B12 deficiency [Recovering/Resolving]
  - Crohn^s disease [Recovered/Resolved with Sequelae]
  - Crohn^s disease [Recovering/Resolving]
  - Post procedural swelling [Unknown]
  - Meniscus injury [Recovered/Resolved]
  - Large intestine perforation [Recovered/Resolved]
  - Pruritus [Not Recovered/Not Resolved]
  - Intestinal mass [Recovered/Resolved]

NARRATIVE: CASE EVENT DATE: 2015
